FAERS Safety Report 23540070 (Version 2)
Quarter: 2024Q3

REPORT INFORMATION
  Report Type: Report from Study
  Country: US (occurrence: US)
  Receive Date: 20240219
  Receipt Date: 20240903
  Transmission Date: 20241017
  Serious: Yes (Hospitalization, Other)
  Sender: ABBVIE
  Company Number: US-ABBVIE-5310240

PATIENT
  Age: 68 Year
  Sex: Female

DRUGS (8)
  1. SKYRIZI [Suspect]
     Active Substance: RISANKIZUMAB-RZAA
     Indication: Crohn^s disease
     Dosage: STRENGTH: 360MG/2.4M, 2.4 MILLILITRE(S)
     Route: 058
     Dates: start: 202308, end: 202308
  2. SKYRIZI [Suspect]
     Active Substance: RISANKIZUMAB-RZAA
     Dosage: STRENGTH: 360MG/2.4M?2.4 MILLILITRE(S)
     Route: 058
     Dates: start: 20240212
  3. SKYRIZI [Suspect]
     Active Substance: RISANKIZUMAB-RZAA
     Dosage: STRENGTH: 360MG/2.4M?EVERY 8 WEEKS?2.4 MILLILITRE(S)
     Route: 058
     Dates: start: 20231017, end: 20231017
  4. SKYRIZI [Suspect]
     Active Substance: RISANKIZUMAB-RZAA
     Dosage: 360MG/2.4ML SUBCUTANEOUS INJECTION VIA ON BODY INJECTOR AT WEEK 12?2.4 MILLILITRE(S)
     Route: 058
     Dates: start: 20230626, end: 20230626
  5. SKYRIZI [Suspect]
     Active Substance: RISANKIZUMAB-RZAA
     Dosage: STRENGTH: 360MG/2.4 MILLILITRE(S)
     Route: 058
     Dates: start: 20240729
  6. SKYRIZI [Suspect]
     Active Substance: RISANKIZUMAB-RZAA
     Indication: Crohn^s disease
     Dosage: TIME INTERVAL: TOTAL: STRENGTH: 600MG/10ML , WEEK 0?600MG/10ML INTRAVENOUS INFUSION AT WEEK 0
     Route: 042
     Dates: start: 20230404, end: 20230404
  7. SKYRIZI [Suspect]
     Active Substance: RISANKIZUMAB-RZAA
     Indication: Crohn^s disease
     Dosage: TIME INTERVAL: TOTAL: STRENGTH: 600MG/10ML , WEEK 4?FORM STRENGTH: 600 MILLIGRAM
     Route: 042
     Dates: start: 20230502, end: 20230502
  8. SKYRIZI [Suspect]
     Active Substance: RISANKIZUMAB-RZAA
     Indication: Crohn^s disease
     Dosage: TIME INTERVAL: TOTAL: STRENGTH: 600MG/10ML , WEEK 8
     Route: 042
     Dates: start: 20230530, end: 20230530

REACTIONS (10)
  - Nephrolithiasis [Unknown]
  - Crohn^s disease [Unknown]
  - Urinary tract infection [Unknown]
  - Fatigue [Not Recovered/Not Resolved]
  - Arthralgia [Not Recovered/Not Resolved]
  - Gastrointestinal sounds abnormal [Unknown]
  - Frequent bowel movements [Not Recovered/Not Resolved]
  - Insomnia [Unknown]
  - Sepsis [Unknown]
  - Asthenia [Not Recovered/Not Resolved]

NARRATIVE: CASE EVENT DATE: 20230501
